FAERS Safety Report 7564975-4 (Version None)
Quarter: 2011Q2

REPORT INFORMATION
  Report Type: 
  Country: None (occurrence: None)
  Receive Date: 20110622
  Receipt Date: 20110418
  Transmission Date: 20111010
  Serious: Yes (Other)
  Sender: FDA-Public Use
  Company Number: US-MYLANLABS-2011S1004752

PATIENT
  Age: 71 Year
  Sex: Female
  Weight: 74.39 kg

DRUGS (16)
  1. LITHIUM CITRATE [Concomitant]
     Route: 048
  2. SERTRALINE HYDROCHLORIDE [Concomitant]
     Indication: DEPRESSION
     Route: 048
  3. DEPAKOTE [Suspect]
     Indication: SCHIZOAFFECTIVE DISORDER
     Route: 048
     Dates: end: 20110301
  4. ASPIRIN [Concomitant]
     Route: 048
  5. CLOZAPINE [Suspect]
     Indication: SCHIZOAFFECTIVE DISORDER
     Dosage: 50MG AM 500MG HS
     Route: 048
     Dates: end: 20110201
  6. CLOZAPINE [Suspect]
     Dosage: 50MG AM 500MG HS
     Route: 048
     Dates: end: 20110201
  7. LEVOTHYROXINE SODIUM [Concomitant]
     Indication: HYPOTHYROIDISM
     Route: 048
  8. METFORMIN HCL [Concomitant]
     Indication: DIABETES MELLITUS
     Route: 048
  9. HALOPERIDOL [Concomitant]
     Route: 048
  10. OMEPRAZOLE [Concomitant]
     Indication: GASTROOESOPHAGEAL REFLUX DISEASE
     Route: 048
  11. CLONAZEPAM [Concomitant]
     Indication: ANXIETY
     Route: 048
  12. GABAPENTIN [Concomitant]
     Indication: CONVULSION
     Route: 048
  13. LISINOPRIL [Concomitant]
     Indication: HYPERTENSION
     Route: 048
  14. NAMENDA [Concomitant]
     Indication: DEMENTIA ALZHEIMER'S TYPE
     Route: 048
  15. CALCIUM + VITAMIN D /01483701/ [Concomitant]
     Indication: OSTEOPOROSIS
     Dosage: 600/400MG
     Route: 048
  16. FERROUS SULFATE TAB [Concomitant]
     Indication: ANAEMIA
     Route: 048

REACTIONS (1)
  - GRANULOCYTOPENIA [None]
